APPROVED DRUG PRODUCT: ZIDOVUDINE
Active Ingredient: ZIDOVUDINE
Strength: 300MG
Dosage Form/Route: TABLET;ORAL
Application: A090561 | Product #001 | TE Code: AB
Applicant: CIPLA LTD
Approved: Oct 27, 2010 | RLD: No | RS: No | Type: RX